FAERS Safety Report 15714494 (Version 1)
Quarter: 2018Q4

REPORT INFORMATION
  Report Type: Spontaneous
  Country: ES (occurrence: ES)
  Receive Date: 20181212
  Receipt Date: 20181212
  Transmission Date: 20190205
  Serious: Yes (Other)
  Sender: FDA-Public Use
  Company Number: ES-PFIZER INC-2018503166

PATIENT
  Age: 72 Year
  Sex: Female

DRUGS (4)
  1. AREMIS (SERTRALINE HYDROCHLORIDE) [Suspect]
     Active Substance: SERTRALINE HYDROCHLORIDE
     Dosage: UNK
  2. LEXATIN [BROMAZEPAM] [Concomitant]
  3. ORFIDAL [Suspect]
     Active Substance: LORAZEPAM
     Dosage: UNK
  4. VALERIAN 2000 COMPLEX [Concomitant]

REACTIONS (9)
  - Headache [Unknown]
  - Anxiety [Unknown]
  - Depressed mood [Unknown]
  - Fatigue [Unknown]
  - Fear [Unknown]
  - Insomnia [Unknown]
  - Drug dependence [Unknown]
  - Rebound effect [Unknown]
  - Malaise [Unknown]
